FAERS Safety Report 5266456-X (Version None)
Quarter: 2007Q1

REPORT INFORMATION
  Report Type: 
  Country: None (occurrence: None)
  Receive Date: 20070315
  Receipt Date: 20070313
  Transmission Date: 20070707
  Serious: Yes (Other)
  Sender: FDA-Public Use
  Company Number: CH-BRISTOL-MYERS SQUIBB COMPANY-13566401

PATIENT
  Age: 64 Year
  Sex: Male

DRUGS (4)
  1. REYATAZ [Suspect]
     Dates: start: 20041105
  2. LAMIVUDINE [Concomitant]
  3. VIDEX [Concomitant]
  4. NORVIR [Concomitant]

REACTIONS (2)
  - LIPODYSTROPHY ACQUIRED [None]
  - WEIGHT INCREASED [None]
